FAERS Safety Report 19081248 (Version 3)
Quarter: 2021Q3

REPORT INFORMATION
  Report Type: Spontaneous
  Country: US (occurrence: US)
  Receive Date: 20210331
  Receipt Date: 20210929
  Transmission Date: 20211014
  Serious: Yes (Other)
  Sender: FDA-Public Use
  Company Number: US-GILEAD-2021-0523137

PATIENT
  Age: 44 Year
  Sex: Male
  Weight: 93.42 kg

DRUGS (14)
  1. VIAGRA [Concomitant]
     Active Substance: SILDENAFIL CITRATE
  2. TRUVADA [Suspect]
     Active Substance: EMTRICITABINE\TENOFOVIR DISOPROXIL FUMARATE
     Indication: HIV INFECTION
     Dosage: UNK
     Route: 048
     Dates: start: 2004, end: 201612
  3. PREZISTA [Concomitant]
     Active Substance: DARUNAVIR ETHANOLATE
  4. OMEPRAZOLE. [Concomitant]
     Active Substance: OMEPRAZOLE
  5. KALETRA [Concomitant]
     Active Substance: LOPINAVIR\RITONAVIR
  6. TIVICAY [Concomitant]
     Active Substance: DOLUTEGRAVIR SODIUM
  7. PEPCID [Concomitant]
     Active Substance: FAMOTIDINE
  8. ALBUTEROL [SALBUTAMOL] [Concomitant]
     Active Substance: ALBUTEROL
  9. AMLODIPINE [Concomitant]
     Active Substance: AMLODIPINE BESYLATE
  10. TRAMADOL. [Concomitant]
     Active Substance: TRAMADOL
  11. DESCOVY [Concomitant]
     Active Substance: EMTRICITABINE\TENOFOVIR ALAFENAMIDE FUMARATE
  12. AMOXICILLIN. [Concomitant]
     Active Substance: AMOXICILLIN
  13. AMBIEN [Concomitant]
     Active Substance: ZOLPIDEM TARTRATE
  14. ATORVASTATIN [Concomitant]
     Active Substance: ATORVASTATIN

REACTIONS (9)
  - Chronic kidney disease [Not Recovered/Not Resolved]
  - Pollakiuria [Unknown]
  - Anxiety [Not Recovered/Not Resolved]
  - Fatigue [Unknown]
  - Decreased activity [Unknown]
  - Blood creatinine increased [Unknown]
  - Pain [Not Recovered/Not Resolved]
  - Anhedonia [Not Recovered/Not Resolved]
  - Emotional distress [Not Recovered/Not Resolved]

NARRATIVE: CASE EVENT DATE: 2011
